FAERS Safety Report 25702830 (Version 1)
Quarter: 2025Q3

REPORT INFORMATION
  Report Type: Spontaneous
  Country: EU (occurrence: ID)
  Receive Date: 20250819
  Receipt Date: 20250819
  Transmission Date: 20251021
  Serious: Yes (Other)
  Sender: AMGEN
  Company Number: EU-AMGEN-IDNSP2025161276

PATIENT

DRUGS (2)
  1. XGEVA [Suspect]
     Active Substance: DENOSUMAB
     Indication: Metastases to bone
     Route: 065
  2. XGEVA [Suspect]
     Active Substance: DENOSUMAB
     Indication: Neoplasm malignant

REACTIONS (5)
  - Bone erosion [Unknown]
  - Osteonecrosis of jaw [Unknown]
  - Periodontitis [Unknown]
  - Tooth disorder [Unknown]
  - Dental caries [Unknown]
